FAERS Safety Report 9948782 (Version 2)
Quarter: 2014Q1

REPORT INFORMATION
  Report Type: Spontaneous
  Country: JP (occurrence: JP)
  Receive Date: 20140304
  Receipt Date: 20140314
  Transmission Date: 20141002
  Serious: Yes (Hospitalization, Other)
  Sender: FDA-Public Use
  Company Number: JP-RANBAXY-2014RR-78724

PATIENT
  Age: 60 Year
  Sex: Female

DRUGS (2)
  1. MINOCYCLINE [Suspect]
     Indication: CYSTITIS
     Dosage: INTERMITTENT COURSES
     Route: 048
  2. GAMMAGLOBULIN [Concomitant]
     Indication: ENDOCARDITIS
     Dosage: 0.4 G/KG/DAY
     Route: 042

REACTIONS (2)
  - Drug reaction with eosinophilia and systemic symptoms [Recovering/Resolving]
  - Myocarditis [Recovering/Resolving]
